FAERS Safety Report 6731965-0 (Version None)
Quarter: 2010Q2

REPORT INFORMATION
  Report Type: 
  Country: None (occurrence: None)
  Receive Date: 20100519
  Receipt Date: 20100505
  Transmission Date: 20101027
  Serious: Yes (Other)
  Sender: FDA-Public Use
  Company Number: PHHY2010BR28982

PATIENT
  Age: 67 Year
  Sex: Female

DRUGS (5)
  1. DIOVAN [Suspect]
     Dosage: 1 TABLET IN THE MORNING
  2. OMEPRAZOLE [Concomitant]
     Indication: GASTRITIS
     Dosage: 1 CAPSULE IN THE MORNING
     Route: 048
     Dates: start: 20070101
  3. SOMALGIN [Concomitant]
     Indication: ANTICOAGULANT THERAPY
     Dosage: 1 TABLET AFTER THE LUNCH
     Route: 048
  4. AMLODIPINE BESYLATE [Concomitant]
     Dosage: 5 MG, UNK
  5. AMLODIPINE BESYLATE [Concomitant]
     Dosage: 10 MG, UNK

REACTIONS (5)
  - BLOOD CHOLESTEROL INCREASED [None]
  - BLOOD TRIGLYCERIDES ABNORMAL [None]
  - HYPERTENSION [None]
  - OSTEOPENIA [None]
  - VITAMIN B12 INCREASED [None]
